FAERS Safety Report 6654466-7 (Version None)
Quarter: 2010Q1

REPORT INFORMATION
  Report Type: 
  Country: None (occurrence: None)
  Receive Date: 20100326
  Receipt Date: 20100318
  Transmission Date: 20100710
  Serious: Yes (Hospitalization)
  Sender: FDA-Public Use
  Company Number: GXKR2010GB03252

PATIENT
  Sex: Female

DRUGS (2)
  1. RISPERIDONE [Suspect]
     Route: 048
  2. TRAZODONE (NGX) [Suspect]
     Route: 065

REACTIONS (3)
  - COMA [None]
  - ELECTROCARDIOGRAM QT PROLONGED [None]
  - OVERDOSE [None]
